FAERS Safety Report 13682629 (Version 2)
Quarter: 2017Q2

REPORT INFORMATION
  Report Type: Spontaneous
  Country: US (occurrence: US)
  Receive Date: 20170623
  Receipt Date: 20170623
  Transmission Date: 20170830
  Serious: No
  Sender: FDA-Public Use
  Company Number: US-MALLINCKRODT-T201603164

PATIENT
  Age: 61 Year
  Sex: Female

DRUGS (9)
  1. ALLOPURINOL. [Concomitant]
     Active Substance: ALLOPURINOL
  2. MELATONIN [Concomitant]
     Active Substance: MELATONIN
  3. LASIX [Concomitant]
     Active Substance: FUROSEMIDE
  4. VITAMIN B12 [Concomitant]
     Active Substance: CYANOCOBALAMIN
  5. QUINAPRIL. [Concomitant]
     Active Substance: QUINAPRIL
  6. NEPHRO-VITE [Concomitant]
  7. ASA [Concomitant]
     Active Substance: ASPIRIN
  8. H.P. ACTHAR [Suspect]
     Active Substance: CORTICOTROPIN
     Indication: NEPHROTIC SYNDROME
     Dosage: 80 UNITS BID
     Route: 058
     Dates: start: 20160628
  9. PRILOSEC [Concomitant]
     Active Substance: OMEPRAZOLE MAGNESIUM

REACTIONS (2)
  - Pollakiuria [Not Recovered/Not Resolved]
  - Genital haemorrhage [Not Recovered/Not Resolved]

NARRATIVE: CASE EVENT DATE: 20160713
